FAERS Safety Report 24618324 (Version 2)
Quarter: 2024Q4

REPORT INFORMATION
  Report Type: Spontaneous
  Country: US (occurrence: US)
  Receive Date: 20241114
  Receipt Date: 20241121
  Transmission Date: 20250115
  Serious: Yes (Hospitalization, Other)
  Sender: NOVARTIS
  Company Number: US-002147023-NVSC2024US219189

PATIENT
  Sex: Female

DRUGS (1)
  1. PROMACTA [Suspect]
     Active Substance: ELTROMBOPAG OLAMINE
     Indication: Immune thrombocytopenia
     Dosage: 75 MG, QD
     Route: 048

REACTIONS (6)
  - Encephalopathy [Unknown]
  - Hyperammonaemia [Unknown]
  - Unresponsive to stimuli [Unknown]
  - Mental status changes [Unknown]
  - Liver function test abnormal [Unknown]
  - Hypertransaminasaemia [Unknown]
